FAERS Safety Report 5451973-X (Version None)
Quarter: 2007Q3

REPORT INFORMATION
  Report Type: 
  Country: None (occurrence: None)
  Receive Date: 20070912
  Receipt Date: 20070831
  Transmission Date: 20080115
  Serious: Yes (Life-Threatening)
  Sender: FDA-Public Use
  Company Number: GXKR2007GB07612

PATIENT
  Age: 48 Year
  Sex: Female

DRUGS (13)
  1. LABETALOL [Suspect]
     Indication: HYPERTENSION
     Dosage: 5 MG, INTRAVENOUS; 10 MG/H, INFUSION
     Route: 042
  2. PHENOXYBENZAMINE                 (PHENOXYBENZAMINE) [Suspect]
     Indication: HYPERTENSION
     Dosage: INTRAVENOUS; 10 MG INC. TO 30 MG, ORAL; 30 MG, BID, ORAL
     Route: 042
  3. METOPROLOL TARTRATE [Concomitant]
  4. PROPOFOL [Concomitant]
  5. MIDAZOLAM HCL [Concomitant]
  6. FENTANYL [Concomitant]
  7. VECURONIUM BROMIDE [Concomitant]
  8. BUPIVACAINE [Concomitant]
  9. MAGNESIUM                 (MAGNESIUM) [Concomitant]
  10. PHENTOLAMINE           (PHENTOLAMINE) [Concomitant]
  11. PHENYLEPHRINE     (PHENYLEPHRINE) [Concomitant]
  12. EPINEPHRINE [Concomitant]
  13. ATROPINE [Concomitant]

REACTIONS (3)
  - BRADYCARDIA [None]
  - CARDIAC ARREST [None]
  - NO THERAPEUTIC RESPONSE [None]
